FAERS Safety Report 8222734-3 (Version None)
Quarter: 2012Q1

REPORT INFORMATION
  Report Type: 
  Country: None (occurrence: None)
  Receive Date: 20120320
  Receipt Date: 20120306
  Transmission Date: 20120608
  Serious: Yes (Other)
  Sender: FDA-Public Use
  Company Number: US-FRI-1000028930

PATIENT
  Sex: Female

DRUGS (5)
  1. THYROID TAB [Suspect]
     Indication: HYPOTHYROIDISM
     Dosage: 60 MG
     Dates: start: 19980101, end: 20120201
  2. CLONAZEPAM [Concomitant]
     Dosage: 0.5 MG
     Dates: start: 19900101
  3. PAXIL CR [Concomitant]
     Indication: BIPOLAR DISORDER
     Dosage: 10 MG
     Dates: start: 19900101
  4. SEROQUEL [Concomitant]
     Indication: BIPOLAR DISORDER
     Dosage: 6.25 MG
     Dates: start: 19900101
  5. VALTREX [Concomitant]
     Indication: HERPES ZOSTER

REACTIONS (2)
  - THYROTOXIC CRISIS [None]
  - DIARRHOEA [None]
